FAERS Safety Report 7221195-0 (Version None)
Quarter: 2011Q1

REPORT INFORMATION
  Report Type: 
  Country: None (occurrence: None)
  Receive Date: 20110112
  Receipt Date: 20110103
  Transmission Date: 20110831
  Serious: Yes (Death, Hospitalization)
  Sender: FDA-Public Use
  Company Number: BR-ELI_LILLY_AND_COMPANY-BR201011004340

PATIENT
  Sex: Male
  Weight: 65 kg

DRUGS (1)
  1. FORTEO [Suspect]
     Dosage: 20 UG, DAILY (1/D)
     Route: 058
     Dates: start: 20071101

REACTIONS (7)
  - EATING DISORDER [None]
  - URINARY TRACT INFECTION [None]
  - SEPSIS [None]
  - FALL [None]
  - RIB FRACTURE [None]
  - APHASIA [None]
  - ABASIA [None]
